FAERS Safety Report 13037742 (Version 1)
Quarter: 2016Q4

REPORT INFORMATION
  Report Type: Spontaneous
  Country: FR (occurrence: FR)
  Receive Date: 20161217
  Receipt Date: 20161217
  Transmission Date: 20170207
  Serious: Yes (Death, Other)
  Sender: FDA-Public Use
  Company Number: FR-ASTRAZENECA-2016SF31877

PATIENT
  Age: 82 Year
  Sex: Male

DRUGS (23)
  1. XALATAN [Concomitant]
     Active Substance: LATANOPROST
  2. FLECTOR [Concomitant]
     Active Substance: DICLOFENAC EPOLAMINE
  3. EUPRESSYL [Concomitant]
     Active Substance: URAPIDIL
     Dosage: 60 MG/D
  4. RILMENIDINE [Concomitant]
     Active Substance: RILMENIDINE
     Dosage: 2 MG/D
  5. FUROSEMIDE. [Concomitant]
     Active Substance: FUROSEMIDE
     Dosage: 20 MG/D
  6. NITRATED DERIVATIVES [Concomitant]
  7. MIANSERINE [Concomitant]
     Active Substance: MIANSERIN HYDROCHLORIDE
  8. INEXIUM [Suspect]
     Active Substance: ESOMEPRAZOLE
     Indication: HYPERCHLORHYDRIA
     Route: 048
     Dates: start: 20161019, end: 20161115
  9. XOLAAM [Concomitant]
     Active Substance: ALUMINUM HYDROXIDE\MAGNESIUM HYDROXIDE
  10. MERONEM [Suspect]
     Active Substance: MEROPENEM
     Route: 042
     Dates: start: 20161107, end: 20161114
  11. NASACORT [Concomitant]
     Active Substance: TRIAMCINOLONE ACETONIDE
  12. PERINDOPRIL [Concomitant]
     Active Substance: PERINDOPRIL
     Dosage: 4 MG/D
  13. DAFALGAN [Concomitant]
     Active Substance: ACETAMINOPHEN
  14. SPECIAFOLDINE [Concomitant]
     Active Substance: FOLIC ACID
  15. SERESTA [Concomitant]
     Active Substance: OXAZEPAM
     Dosage: 10 MG/D
  16. ZALERG [Concomitant]
     Active Substance: KETOTIFEN FUMARATE
  17. ARTOLAC [Concomitant]
  18. KARDEGIC [Concomitant]
     Active Substance: ASPIRIN LYSINE
     Dosage: 75 MG/D
  19. PANTOPRAZOLE [Concomitant]
     Active Substance: PANTOPRAZOLE SODIUM
     Dosage: 20 MG/D
  20. TAZOCILLIN [Suspect]
     Active Substance: PIPERACILLIN SODIUM\TAZOBACTAM SODIUM
     Route: 065
     Dates: start: 20161027, end: 20161107
  21. PERMIXON [Concomitant]
     Active Substance: SAW PALMETTO
  22. IMOVANE [Concomitant]
     Active Substance: ZOPICLONE
     Dosage: 3.75 MG/D
  23. SYMBICORT [Concomitant]
     Active Substance: BUDESONIDE\FORMOTEROL FUMARATE DIHYDRATE
     Dosage: 400 THREE TIMES A DAY

REACTIONS (2)
  - Thrombocytopenia [Fatal]
  - Pneumonitis [Unknown]

NARRATIVE: CASE EVENT DATE: 20161109
